FAERS Safety Report 6511865-1 (Version None)
Quarter: 2009Q4

REPORT INFORMATION
  Report Type: 
  Country: None (occurrence: None)
  Receive Date: 20091222
  Receipt Date: 20091214
  Transmission Date: 20100525
  Serious: Yes (Life-Threatening, Other)
  Sender: FDA-Public Use
  Company Number: JP-ELI_LILLY_AND_COMPANY-JP200912001007

PATIENT
  Sex: Male

DRUGS (6)
  1. ZYPREXA [Suspect]
     Indication: SCHIZOPHRENIA
     Dosage: 10 MG, DAILY (1/D)
     Route: 048
  2. ZYPREXA [Suspect]
     Dosage: 980 MG, UNK
     Route: 048
     Dates: start: 20091201, end: 20091201
  3. DEPAKENE [Concomitant]
     Dosage: EACH MORNING 200MG / EACH NIGHT 400MG
     Route: 048
  4. VEGETAMIN A [Concomitant]
     Dosage: 10 MG, DAILY (1/D)
     Route: 048
  5. BENZALIN [Concomitant]
     Dosage: 15 MG, DAILY (1/D)
     Route: 048
  6. RISPERIDONE [Concomitant]
     Dosage: 2 MG, DAILY (1/D)
     Route: 048

REACTIONS (8)
  - BLOOD PRESSURE DECREASED [None]
  - DEPRESSED LEVEL OF CONSCIOUSNESS [None]
  - OVERDOSE [None]
  - PRODUCTIVE COUGH [None]
  - PYREXIA [None]
  - RESPIRATORY DISORDER [None]
  - URINARY INCONTINENCE [None]
  - VOMITING [None]
